FAERS Safety Report 24867696 (Version 1)
Quarter: 2025Q1

REPORT INFORMATION
  Report Type: Report from Study
  Country: US (occurrence: US)
  Receive Date: 20250121
  Receipt Date: 20250121
  Transmission Date: 20250409
  Serious: Yes (Death, Hospitalization, Other)
  Sender: BAYER HEALTHCARE LLC
  Company Number: US-BAYER-2025A006367

PATIENT
  Age: 33 Year
  Sex: Male

DRUGS (7)
  1. NAPROXEN [Suspect]
     Active Substance: NAPROXEN
  2. CANNABIS SATIVA SUBSP. INDICA TOP [Suspect]
     Active Substance: CANNABIS SATIVA SUBSP. INDICA TOP
  3. CANNABIS SATIVA FLOWERING TOP [Suspect]
     Active Substance: CANNABIS SATIVA FLOWERING TOP
  4. CLONAZEPAM [Suspect]
     Active Substance: CLONAZEPAM
  5. METHADONE [Suspect]
     Active Substance: METHADONE HYDROCHLORIDE
  6. PREGABALIN [Suspect]
     Active Substance: PREGABALIN
  7. QUETIAPINE [Suspect]
     Active Substance: QUETIAPINE

REACTIONS (3)
  - Drug interaction [None]
  - Sudden cardiac death [Fatal]
  - Withdrawal arrhythmia [None]
